FAERS Safety Report 8516730-6 (Version None)
Quarter: 2012Q2

REPORT INFORMATION
  Report Type: 
  Country: None (occurrence: None)
  Receive Date: 20120406
  Receipt Date: 20100318
  Transmission Date: 20120825
  Serious: Yes (Death)
  Sender: FDA-Public Use
  Company Number: PHEH2009US16203

PATIENT
  Sex: Female

DRUGS (7)
  1. MULTIVITAMIN ^LAPPE^ (VITAMINS NOS) [Concomitant]
  2. REGLAN /USA/ (METOCLOPRAMIDE HYDROCHLORIDE) [Concomitant]
  3. MS CONTIN [Concomitant]
  4. ZOFRAN [Concomitant]
  5. TASIGNA [Suspect]
     Indication: GASTROINTESTINAL STROMAL TUMOUR
     Dosage: 400 MG, BID, ORAL
     Route: 048
     Dates: start: 20090930
  6. MIRALAX [Concomitant]
  7. COMPAZINE [Concomitant]

REACTIONS (15)
  - GASTROINTESTINAL STROMAL TUMOUR [None]
  - NEOPLASM MALIGNANT [None]
  - NEOPLASM PROGRESSION [None]
  - PAIN [None]
  - HEPATOMEGALY [None]
  - ASTHENIA [None]
  - ABDOMINAL PAIN [None]
  - NAUSEA [None]
  - ABDOMINAL TENDERNESS [None]
  - OEDEMA PERIPHERAL [None]
  - ABDOMINAL DISTENSION [None]
  - BLOOD PRESSURE DECREASED [None]
  - BREATH SOUNDS ABNORMAL [None]
  - HYPOPHAGIA [None]
  - TACHYCARDIA [None]
